FAERS Safety Report 14861155 (Version 1)
Quarter: 2018Q2

REPORT INFORMATION
  Report Type: Spontaneous
  Country: TW (occurrence: TW)
  Receive Date: 20180508
  Receipt Date: 20180508
  Transmission Date: 20180711
  Serious: Yes (Death, Hospitalization)
  Sender: FDA-Public Use
  Company Number: TW-SA-2018SA116098

PATIENT
  Age: 2 Year
  Sex: Male

DRUGS (1)
  1. FABRAZYME [Suspect]
     Active Substance: AGALSIDASE BETA
     Indication: FABRY^S DISEASE
     Route: 041
     Dates: start: 201501, end: 201804

REACTIONS (4)
  - Loss of consciousness [Fatal]
  - Nasopharyngitis [Fatal]
  - Coma [Fatal]
  - Pyrexia [Fatal]

NARRATIVE: CASE EVENT DATE: 20180421
